FAERS Safety Report 21412219 (Version 1)
Quarter: 2022Q4

REPORT INFORMATION
  Report Type: Spontaneous
  Country: US (occurrence: None)
  Receive Date: 20221004
  Receipt Date: 20221004
  Transmission Date: 20230112
  Serious: No
  Sender: FDA-Public Use
  Company Number: None

PATIENT
  Age: 67 Year
  Sex: Female
  Weight: 108.86 kg

DRUGS (1)
  1. XELJANZ XR [Suspect]
     Active Substance: TOFACITINIB CITRATE
     Indication: Psoriasis
     Dosage: IN MORNING?TAKE 1 TABLET BY MOUTH EVERY MORNING AS DIRECTED. DO?NOT CRUSH, CHEW, OR SPLIT. SWALLOW W
     Route: 048
     Dates: start: 202202

REACTIONS (2)
  - Therapy interrupted [None]
  - Skin cancer [None]
